FAERS Safety Report 8272189-8 (Version None)
Quarter: 2012Q2

REPORT INFORMATION
  Report Type: 
  Country: None (occurrence: None)
  Receive Date: 20120410
  Receipt Date: 20120329
  Transmission Date: 20120825
  Serious: Yes (Other)
  Sender: FDA-Public Use
  Company Number: ES-GILEAD-2012-0052966

PATIENT
  Sex: Male

DRUGS (2)
  1. VIREAD [Suspect]
     Dosage: 1 DF, EACH 5 DAYS
  2. VIREAD [Suspect]
     Indication: HEPATITIS B
     Dosage: 1 DF, EACH 4DAYS

REACTIONS (2)
  - PROTEINURIA [None]
  - NEPHROTIC SYNDROME [None]
